FAERS Safety Report 15945807 (Version 1)
Quarter: 2019Q1

REPORT INFORMATION
  Report Type: Report from Study
  Country: US (occurrence: US)
  Receive Date: 20190211
  Receipt Date: 20190211
  Transmission Date: 20190417
  Serious: Yes (Other)
  Sender: FDA-Public Use
  Company Number: US-BIOGEN-2019BI00693972

PATIENT
  Sex: Male

DRUGS (1)
  1. AVONEX [Suspect]
     Active Substance: INTERFERON BETA-1A
     Indication: MULTIPLE SCLEROSIS
     Route: 030
     Dates: start: 20120131

REACTIONS (9)
  - Haematochezia [Unknown]
  - Haemorrhoids [Unknown]
  - Mucous stools [Unknown]
  - Abdominal pain [Unknown]
  - Diarrhoea [Unknown]
  - Prostate cancer [Unknown]
  - Constipation [Unknown]
  - Flatulence [Unknown]
  - Back pain [Unknown]
